FAERS Safety Report 25705501 (Version 1)
Quarter: 2025Q3

REPORT INFORMATION
  Report Type: Spontaneous
  Country: CH (occurrence: CH)
  Receive Date: 20250820
  Receipt Date: 20250820
  Transmission Date: 20251021
  Serious: Yes (Other)
  Sender: TEVA
  Company Number: CH-TEVA-VS-3363137

PATIENT
  Age: 63 Year
  Sex: Male

DRUGS (2)
  1. ESOMEPRAZOLE [Interacting]
     Active Substance: ESOMEPRAZOLE
     Indication: Antacid therapy
     Route: 065
  2. HYDROCHLOROTHIAZIDE [Interacting]
     Active Substance: HYDROCHLOROTHIAZIDE
     Indication: Hypertension
     Route: 065

REACTIONS (3)
  - Electrolyte imbalance [Recovering/Resolving]
  - Metabolic alkalosis [Recovering/Resolving]
  - Drug interaction [Unknown]
